FAERS Safety Report 20638634 (Version 1)
Quarter: 2022Q1

REPORT INFORMATION
  Report Type: Report from Study
  Country: US (occurrence: None)
  Receive Date: 20220325
  Receipt Date: 20220325
  Transmission Date: 20220423
  Serious: Yes (Death)
  Sender: FDA-Public Use
  Company Number: US-Eisai Medical Research-EC-2022-111398

PATIENT
  Age: 64 Year
  Sex: Male
  Weight: 81.6 kg

DRUGS (31)
  1. LENVIMA [Suspect]
     Active Substance: LENVATINIB
     Indication: Renal cancer
     Route: 048
  2. ALBUTEROL [Concomitant]
     Active Substance: ALBUTEROL
  3. ALLEGRA [Concomitant]
     Active Substance: FEXOFENADINE HYDROCHLORIDE
  4. ASPIRIN [Concomitant]
     Active Substance: ASPIRIN
  5. ATORVASTATIN [Concomitant]
     Active Substance: ATORVASTATIN
  6. BENZONATATE [Concomitant]
     Active Substance: BENZONATATE
  7. BISACODYL [Concomitant]
     Active Substance: BISACODYL
  8. CALCITRIOL [Concomitant]
     Active Substance: CALCITRIOL
  9. COLACE [Concomitant]
     Active Substance: DOCUSATE SODIUM
  10. DOXYCYCLINE [Concomitant]
     Active Substance: DOXYCYCLINE
  11. ELIQUIS [Concomitant]
     Active Substance: APIXABAN
  12. EZETIMIBE [Concomitant]
     Active Substance: EZETIMIBE
  13. FERROUS SULFATE [Concomitant]
     Active Substance: FERROUS SULFATE
  14. FUROSEMIDE [Concomitant]
     Active Substance: FUROSEMIDE
  15. GABAPENTIN [Concomitant]
     Active Substance: GABAPENTIN
  16. HUMALOG [Concomitant]
     Active Substance: INSULIN LISPRO
  17. INSULIN GLARGINE [Concomitant]
     Active Substance: INSULIN GLARGINE
  18. DUONEB [Concomitant]
     Active Substance: ALBUTEROL SULFATE\IPRATROPIUM BROMIDE
  19. KEYTRUDA [Concomitant]
     Active Substance: PEMBROLIZUMAB
  20. LIDOCAINE [Concomitant]
     Active Substance: LIDOCAINE
     Route: 062
  21. TOPROL XL [Concomitant]
     Active Substance: METOPROLOL SUCCINATE
  22. FAMOTIDINE [Concomitant]
     Active Substance: FAMOTIDINE
  23. MUCINEX [Concomitant]
     Active Substance: GUAIFENESIN
  24. OXYCONTIN [Concomitant]
     Active Substance: OXYCODONE HYDROCHLORIDE
  25. PERCOCET [Concomitant]
     Active Substance: ACETAMINOPHEN\OXYCODONE HYDROCHLORIDE
  26. SIMETHICONE (DIMETHICONE) [Concomitant]
     Active Substance: DIMETHICONE
  27. CRANBERRY [Concomitant]
     Active Substance: CRANBERRY
  28. TAMSULOSIN [Concomitant]
     Active Substance: TAMSULOSIN
  29. VITAMIN B12 [Concomitant]
     Active Substance: CYANOCOBALAMIN
  30. VALACYCLOVIR [Concomitant]
     Active Substance: VALACYCLOVIR HYDROCHLORIDE
  31. ZOFRAN [Concomitant]
     Active Substance: ONDANSETRON HYDROCHLORIDE

REACTIONS (2)
  - Malignant neoplasm progression [Fatal]
  - Renal failure [Fatal]

NARRATIVE: CASE EVENT DATE: 20220101
